FAERS Safety Report 6098760-X (Version None)
Quarter: 2009Q1

REPORT INFORMATION
  Report Type: 
  Country: None (occurrence: None)
  Receive Date: 20090302
  Receipt Date: 20090218
  Transmission Date: 20090719
  Serious: Yes (Death, Hospitalization, Other)
  Sender: FDA-Public Use
  Company Number: IN-JNJFOC-20090204717

PATIENT
  Age: 32 Year

DRUGS (1)
  1. INFLIXIMAB [Suspect]
     Indication: HEPATITIS ALCOHOLIC
     Route: 042

REACTIONS (1)
  - DISSEMINATED TUBERCULOSIS [None]
